FAERS Safety Report 5228068-3 (Version None)
Quarter: 2007Q1

REPORT INFORMATION
  Report Type: 
  Country: None (occurrence: None)
  Receive Date: 20061201
  Receipt Date: 20061011
  Transmission Date: 20070707
  Serious: No
  Sender: FDA-Public Use
  Company Number: US200610002128

PATIENT
  Age: 42 Year
  Sex: Female

DRUGS (4)
  1. CYMBALTA [Suspect]
     Indication: ANXIETY
     Dosage: 20 MG, OTHER (ONCE)
     Dates: start: 20060918, end: 20060918
  2. LABETALOL HCL [Concomitant]
  3. XANAX /USA/ (ALPRAZOLAM) [Concomitant]
  4. VITAMINS [Concomitant]

REACTIONS (9)
  - CHEST DISCOMFORT [None]
  - CHEST PAIN [None]
  - DYSPHAGIA [None]
  - HOT FLUSH [None]
  - HYPERTENSION [None]
  - MUSCULAR WEAKNESS [None]
  - PARAESTHESIA [None]
  - TREMOR [None]
  - VISION BLURRED [None]
